FAERS Safety Report 20752940 (Version 1)
Quarter: 2022Q2

REPORT INFORMATION
  Report Type: Spontaneous
  Country: US (occurrence: None)
  Receive Date: 20220426
  Receipt Date: 20220426
  Transmission Date: 20220721
  Serious: No
  Sender: FDA-Public Use
  Company Number: US-ROCHE-2955520

PATIENT
  Sex: Female

DRUGS (1)
  1. ESBRIET [Suspect]
     Active Substance: PIRFENIDONE
     Indication: Idiopathic pulmonary fibrosis
     Dosage: 267 MG 30 DAY SUPPLY (270 TABLETS) 11 REFILLS, DAY 1 THROUGH 7: 1 TABLET BY MOUTH THREE TIMES A DAY
     Route: 048

REACTIONS (1)
  - Vomiting [Unknown]
